FAERS Safety Report 23288979 (Version 1)
Quarter: 2023Q4

REPORT INFORMATION
  Report Type: Spontaneous
  Country: US (occurrence: US)
  Receive Date: 20231212
  Receipt Date: 20231212
  Transmission Date: 20240110
  Serious: Yes (Other)
  Sender: FDA-Public Use
  Company Number: US-GE HEALTHCARE-2023CSU011385

PATIENT
  Age: 55 Year
  Sex: Female
  Weight: 67.7 kg

DRUGS (7)
  1. OMNIPAQUE [Suspect]
     Active Substance: IOHEXOL
     Indication: Computerised tomogram heart
     Dosage: 50 ML, SINGLE
     Route: 042
     Dates: start: 20231207, end: 20231207
  2. OMNIPAQUE [Suspect]
     Active Substance: IOHEXOL
     Indication: Mitral valve disease
  3. ALBUTEROL [Concomitant]
     Active Substance: ALBUTEROL
     Indication: Asthma
     Dosage: 1-2 PUFF AS NEEDED EVERY 4 HRS
     Route: 050
  4. ALBUTEROL [Concomitant]
     Active Substance: ALBUTEROL
     Indication: Dyspnoea
  5. SYMBICORT [Concomitant]
     Active Substance: BUDESONIDE\FORMOTEROL FUMARATE DIHYDRATE
     Indication: Asthma
     Dosage: 2 PUFFS 2 TIMES A DAY
     Route: 050
  6. DIAZEPAM [Concomitant]
     Active Substance: DIAZEPAM
     Indication: Procedural anxiety
     Dosage: 5-10 MG PRE-POCEDURE
     Route: 048
  7. NITROGLYCERIN [Concomitant]
     Active Substance: NITROGLYCERIN
     Indication: Computerised tomogram heart
     Dosage: UNK
     Dates: start: 20231207, end: 20231207

REACTIONS (2)
  - Mental status changes [Recovered/Resolved]
  - Contrast media allergy [Recovered/Resolved]

NARRATIVE: CASE EVENT DATE: 20231207
